FAERS Safety Report 8584076-6 (Version None)
Quarter: 2012Q3

REPORT INFORMATION
  Report Type: 
  Country: None (occurrence: None)
  Receive Date: 20120810
  Receipt Date: 20120723
  Transmission Date: 20120928
  Serious: Yes (Hospitalization, Other)
  Sender: FDA-Public Use
  Company Number: US-009507513-1207USA011320

PATIENT

DRUGS (10)
  1. CLONAZEPAM [Concomitant]
  2. LEVOMEFOLATE CALCIUM [Concomitant]
  3. BENICAR [Suspect]
     Dosage: 20 MG, BID
     Route: 048
  4. SOYBEAN [Concomitant]
  5. CARBAMAZEPINE [Concomitant]
  6. METFORMIN HYDROCHLORIDE [Concomitant]
  7. BENICAR [Suspect]
     Dosage: 20 MG, QD
     Route: 048
  8. DIAZEPAM [Concomitant]
  9. VYTORIN [Suspect]
     Dosage: 10/20
     Route: 048
  10. SERTRALINE HYDROCHLORIDE [Concomitant]

REACTIONS (6)
  - DEPRESSION [None]
  - DRUG INEFFECTIVE [None]
  - HYPERAEMIA [None]
  - GINGIVAL DISORDER [None]
  - HYPERCHOLESTEROLAEMIA [None]
  - OEDEMA PERIPHERAL [None]
